FAERS Safety Report 7301033-8 (Version None)
Quarter: 2011Q1

REPORT INFORMATION
  Report Type: 
  Country: None (occurrence: None)
  Receive Date: 20110218
  Receipt Date: 20110210
  Transmission Date: 20110831
  Serious: Yes (Hospitalization)
  Sender: FDA-Public Use
  Company Number: CH-NOVOPROD-323159

PATIENT
  Sex: Male

DRUGS (1)
  1. NORDITROPIN NORDIFLEX [Suspect]
     Indication: PRODUCT USED FOR UNKNOWN INDICATION
     Dosage: UNK
     Route: 065

REACTIONS (1)
  - PULMONARY EMBOLISM [None]
